FAERS Safety Report 7384496-1 (Version None)
Quarter: 2011Q1

REPORT INFORMATION
  Report Type: 
  Country: None (occurrence: None)
  Receive Date: 20110330
  Receipt Date: 20110325
  Transmission Date: 20110831
  Serious: Yes (Hospitalization)
  Sender: FDA-Public Use
  Company Number: FR-PFIZER INC-2011066555

PATIENT
  Age: 43 Year
  Sex: Male

DRUGS (8)
  1. ROVAMYCIN [Concomitant]
     Dosage: UNK
     Dates: start: 20101222
  2. TAZOCILLINE [Suspect]
     Dosage: 4 G, 3X/DAY
     Route: 042
     Dates: start: 20101222
  3. TRILEPTAL [Concomitant]
     Dosage: UNK
  4. ABACAVIR/LAMIVUDINE [Concomitant]
  5. MALOCIDE [Concomitant]
  6. PREZISTA [Concomitant]
     Dosage: UNK
  7. LYRICA [Concomitant]
     Dosage: UNK
  8. AMIKACIN [Concomitant]
     Dosage: UNK
     Dates: start: 20101222

REACTIONS (2)
  - TOXIC SKIN ERUPTION [None]
  - EOSINOPHILIA [None]
